FAERS Safety Report 9787688 (Version 1)
Quarter: 2013Q4

REPORT INFORMATION
  Report Type: Spontaneous
  Country: GB (occurrence: None)
  Receive Date: 20131226
  Receipt Date: 20131226
  Transmission Date: 20140711
  Serious: Yes (Hospitalization, Other)
  Sender: FDA-Public Use
  Company Number: FK201305434

PATIENT
  Sex: Male
  Weight: 3.1 kg

DRUGS (8)
  1. BUPIVACAINE (MANUFACTURER UNKNOWN) (BUPIVACAINE) (BUPIVACAINE) [Suspect]
     Indication: CAESAREAN SECTION
     Dosage: TRANSPLACENTAL
  2. GENTAMICIN (GENTAMICIN) [Concomitant]
  3. DIAMORPHINE (DIAMORPHINE) [Concomitant]
  4. THIOPENTONE (THIOPENTAL) [Concomitant]
  5. SUXAMETHONIUM (SUXAMETHONIUM) [Concomitant]
  6. PHENYLEPHRINE (PHENYLEPHRINE) [Concomitant]
  7. BENZYLPENICILLIN (BENZYLPENICILLIN) [Concomitant]
  8. LABETALOL (LABETALOL) [Concomitant]

REACTIONS (2)
  - Methaemoglobinaemia [None]
  - Maternal drugs affecting foetus [None]
